FAERS Safety Report 7796317-3 (Version None)
Quarter: 2011Q4

REPORT INFORMATION
  Report Type: 
  Country: None (occurrence: None)
  Receive Date: 20111005
  Receipt Date: 20110927
  Transmission Date: 20120403
  Serious: Yes (Hospitalization)
  Sender: FDA-Public Use
  Company Number: US-BIOGENIDEC-2011BI023844

PATIENT
  Age: 48 Year
  Sex: Male

DRUGS (2)
  1. BACLOFEN [Concomitant]
     Indication: ABASIA
  2. TYSABRI [Suspect]
     Indication: MULTIPLE SCLEROSIS
     Route: 042
     Dates: start: 20081203

REACTIONS (17)
  - ESCHERICHIA URINARY TRACT INFECTION [None]
  - DEPRESSION [None]
  - HYPERAESTHESIA [None]
  - HYPOAESTHESIA [None]
  - SUICIDAL IDEATION [None]
  - MOBILITY DECREASED [None]
  - ABASIA [None]
  - LYMPHOEDEMA [None]
  - MUSCLE SPASTICITY [None]
  - MUSCULAR WEAKNESS [None]
  - MULTIPLE SCLEROSIS RELAPSE [None]
  - MUSCLE SPASMS [None]
  - NEUROGENIC BLADDER [None]
  - INSOMNIA [None]
  - HOT FLUSH [None]
  - ANXIETY [None]
  - BURNING SENSATION [None]
